FAERS Safety Report 9972577 (Version 1)
Quarter: 2014Q1

REPORT INFORMATION
  Report Type: Spontaneous
  Country: US (occurrence: None)
  Receive Date: 20140127
  Receipt Date: 20140127
  Transmission Date: 20141002
  Serious: Yes (Death)
  Sender: FDA-Public Use
  Company Number: 1274661

PATIENT
  Age: 57 Year
  Sex: Female

DRUGS (2)
  1. RITUXIMAB [Suspect]
     Indication: HAIRY CELL LEUKAEMIA
     Dosage: (375 MG/M2, SINGLE DOSE), INTRAVENOUS (NOT OTHERWISE SPECIFIED)?
     Route: 042
  2. CLADRIBINE (CLADRIBINE) (INFUSION) [Concomitant]

REACTIONS (1)
  - Cardiac failure [None]
